FAERS Safety Report 23203641 (Version 1)
Quarter: 2023Q4

REPORT INFORMATION
  Report Type: Spontaneous
  Country: US (occurrence: US)
  Receive Date: 20231120
  Receipt Date: 20231120
  Transmission Date: 20240110
  Serious: No
  Sender: FDA-Public Use
  Company Number: US-OPELLA-2023OHG015568

PATIENT
  Sex: Male

DRUGS (5)
  1. DULCOLAX CHEWY FRUIT BITES CHERRY BERRY [Suspect]
     Active Substance: MAGNESIUM HYDROXIDE
     Indication: Colonoscopy
     Dates: start: 2023
  2. DULCOLAX CHEWY FRUIT BITES CHERRY BERRY [Suspect]
     Active Substance: MAGNESIUM HYDROXIDE
     Dates: start: 20231108
  3. OMEGA-3 ACIDS [Concomitant]
     Active Substance: OMEGA-3 FATTY ACIDS
     Indication: Liver disorder
  4. TYLENOL [Concomitant]
     Active Substance: ACETAMINOPHEN
     Indication: Pain
  5. PROBIOTICS NOS [Concomitant]
     Active Substance: PROBIOTICS NOS
     Indication: Liver disorder

REACTIONS (2)
  - Therapeutic product effect incomplete [Unknown]
  - No adverse event [Unknown]

NARRATIVE: CASE EVENT DATE: 20230909
